FAERS Safety Report 8991447 (Version 2)
Quarter: 2013Q1

REPORT INFORMATION
  Report Type: Spontaneous
  Country: AT (occurrence: AT)
  Receive Date: 20121229
  Receipt Date: 20130124
  Transmission Date: 20140127
  Serious: Yes (Other)
  Sender: FDA-Public Use
  Company Number: AT-009507513-1211AUT004145

PATIENT
  Age: 69 Year
  Sex: Female

DRUGS (1)
  1. SINEMET [Suspect]
     Dosage: UNK
     Route: 048

REACTIONS (6)
  - Therapeutic response decreased [Unknown]
  - Vertigo [Unknown]
  - Feeling abnormal [Unknown]
  - Dizziness [Unknown]
  - Drug effect decreased [Unknown]
  - Dizziness postural [Unknown]
